FAERS Safety Report 9897345 (Version 1)
Quarter: 2014Q1

REPORT INFORMATION
  Report Type: Report from Study
  Country: ZA (occurrence: ZA)
  Receive Date: 20140214
  Receipt Date: 20140214
  Transmission Date: 20141002
  Serious: Yes (Death, Hospitalization)
  Sender: FDA-Public Use
  Company Number: ZA-ROCHE-1348749

PATIENT
  Age: 62 Year
  Sex: Male

DRUGS (4)
  1. MIRCERA [Suspect]
     Indication: NEPHROGENIC ANAEMIA
     Route: 058
     Dates: start: 201008
  2. MIRCERA [Suspect]
     Route: 058
     Dates: start: 201205
  3. MIRCERA [Suspect]
     Dosage: MOST RECENT DOSE IN JAN/2014
     Route: 058
     Dates: start: 201308
  4. VENOFER [Concomitant]
     Route: 065

REACTIONS (2)
  - Pelvic fracture [Unknown]
  - Death [Fatal]
